FAERS Safety Report 11811104 (Version 2)
Quarter: 2015Q4

REPORT INFORMATION
  Report Type: Spontaneous
  Country: FR (occurrence: FR)
  Receive Date: 20151208
  Receipt Date: 20151208
  Transmission Date: 20160305
  Serious: Yes (Hospitalization)
  Sender: FDA-Public Use
  Company Number: FR-BAXTER-2015BAX064655

PATIENT
  Age: 16 Year
  Sex: Female

DRUGS (10)
  1. HOLOXAN 2000 MG, POUDRE POUR USAGE PARENT?RAL [Suspect]
     Active Substance: IFOSFAMIDE
     Dosage: RESULTING IN 3700 MG ON D1, D2, D3, D4 AND D5, TOTAL DOSE ADMINISTERED 3360 MG
     Route: 042
     Dates: start: 20151014, end: 20151018
  2. CISPLATIN. [Suspect]
     Active Substance: CISPLATIN
     Dosage: RESULTING IN 30 MG ON D1, D2, D3, D4 AND D5
     Route: 065
     Dates: start: 20151014, end: 20151018
  3. CELLTOP 100 MG/5 ML, SOLUTION INJECTABLE POUR PERFUSION [Suspect]
     Active Substance: ETOPOSIDE
     Dosage: RESULTING IN 460 MG ON D1, D2, D3, D4 AND D5
     Route: 065
     Dates: start: 20151014, end: 20151018
  4. UROMITEXAN 1 G/10 ML, SOLUTION INJECTABLE POUR PERFUSION EN FLACON [Suspect]
     Active Substance: MESNA
     Indication: PROPHYLAXIS
     Route: 065
  5. HOLOXAN 2000 MG, POUDRE POUR USAGE PARENT?RAL [Suspect]
     Active Substance: IFOSFAMIDE
     Indication: MEDIASTINUM NEOPLASM
     Dosage: FIRST COURSE VIP PROTOCOL, 6G/M2
     Route: 065
     Dates: start: 20150828
  6. CELLTOP 100 MG/5 ML, SOLUTION INJECTABLE POUR PERFUSION [Suspect]
     Active Substance: ETOPOSIDE
     Indication: MEDIASTINUM NEOPLASM
     Dosage: FIRST COURSE VIP PROTOCOL, 6G/M2
     Route: 065
     Dates: start: 20150828
  7. CISPLATIN. [Suspect]
     Active Substance: CISPLATIN
     Indication: MEDIASTINUM NEOPLASM
     Dosage: FIRST COURSE VIP PROTOCOL, 6G/M2
     Route: 065
     Dates: start: 20150828
  8. CELLTOP 100 MG/5 ML, SOLUTION INJECTABLE POUR PERFUSION [Suspect]
     Active Substance: ETOPOSIDE
     Indication: OFF LABEL USE
     Dosage: SECOND COURSE, INTENSIFIED VIP PROTOCOL, 12G/M2
     Route: 065
     Dates: start: 20150918
  9. CISPLATIN. [Suspect]
     Active Substance: CISPLATIN
     Dosage: SECOND COURSE, INTENSIFIED VIP PROTOCOL, 12G/M2
     Route: 065
     Dates: start: 20150918
  10. HOLOXAN 2000 MG, POUDRE POUR USAGE PARENT?RAL [Suspect]
     Active Substance: IFOSFAMIDE
     Indication: OFF LABEL USE
     Dosage: SECOND COURSE WITH INTENSIFIED VIP PROTOCOL, 12G/M2
     Route: 065
     Dates: start: 20150918

REACTIONS (1)
  - Acute kidney injury [Not Recovered/Not Resolved]

NARRATIVE: CASE EVENT DATE: 20151018
